FAERS Safety Report 8291519-4 (Version None)
Quarter: 2012Q2

REPORT INFORMATION
  Report Type: 
  Country: None (occurrence: None)
  Receive Date: 20120417
  Receipt Date: 20120410
  Transmission Date: 20120825
  Serious: No
  Sender: FDA-Public Use
  Company Number: US-PFIZER INC-2012037127

PATIENT
  Sex: Female
  Weight: 62 kg

DRUGS (13)
  1. ATENOLOL [Concomitant]
     Indication: HYPERTENSION
     Dosage: 25 MG, DAILY
  2. NEURONTIN [Concomitant]
     Indication: NEURALGIA
  3. NORVASC [Concomitant]
     Indication: HYPERTENSION
     Dosage: 5 MG
     Dates: start: 20110405
  4. SPIRIVA [Concomitant]
     Indication: CHRONIC OBSTRUCTIVE PULMONARY DISEASE
     Dosage: UNK
  5. GABAPENTIN [Suspect]
     Indication: NEURALGIA
     Dosage: 300 MG, DAILY
     Dates: start: 20110501
  6. GABAPENTIN [Suspect]
     Indication: MYALGIA
     Dosage: 300 MG AT BEDTIME
     Route: 048
     Dates: start: 20111019, end: 20120213
  7. NEURONTIN [Concomitant]
     Indication: MYALGIA
  8. NEURONTIN [Concomitant]
     Indication: FIBROMYALGIA
     Dosage: UNK
  9. HYDROCHLOROTHIAZIDE [Concomitant]
     Indication: HYPERTENSION
     Dosage: 25 MG
     Dates: start: 20110415
  10. VASOTEC [Concomitant]
     Indication: HYPERTENSION
     Dosage: 20 MG, DAILY
  11. AMITRIPTYLINE [Concomitant]
     Indication: DEPRESSION
     Dosage: 20 MG, DAILY
  12. GABAPENTIN [Suspect]
     Indication: FIBROMYALGIA
     Dosage: 600MG DAILY
     Dates: start: 20090101, end: 20090101
  13. TRAZODONE [Concomitant]
     Indication: DEPRESSION
     Dosage: 50MG IN THE MORNING AND 150MG AT NIGHT

REACTIONS (7)
  - GLOSSODYNIA [None]
  - RASH GENERALISED [None]
  - DEPRESSION [None]
  - VISION BLURRED [None]
  - PRURITUS [None]
  - SALIVARY HYPERSECRETION [None]
  - DRY MOUTH [None]
